FAERS Safety Report 4561558-5 (Version None)
Quarter: 2005Q1

REPORT INFORMATION
  Report Type: 
  Country: None (occurrence: None)
  Receive Date: 20050121
  Receipt Date: 20050104
  Transmission Date: 20050727
  Serious: Yes (Hospitalization, Other)
  Sender: FDA-Public Use
  Company Number: USA041081762

PATIENT
  Age: 85 Year
  Sex: Female
  Weight: 50 kg

DRUGS (1)
  1. FORTEO [Suspect]
     Indication: OSTEOPOROSIS
     Dosage: 20 UG/1 DAY
     Dates: start: 20040101

REACTIONS (9)
  - BODY HEIGHT DECREASED [None]
  - CEREBROVASCULAR ACCIDENT [None]
  - CHILLS [None]
  - CONDITION AGGRAVATED [None]
  - FEAR [None]
  - LIMB DISCOMFORT [None]
  - PHARMACEUTICAL PRODUCT COMPLAINT [None]
  - POSTNASAL DRIP [None]
  - TOOTH FRACTURE [None]
